FAERS Safety Report 13647747 (Version 2)
Quarter: 2017Q3

REPORT INFORMATION
  Report Type: Spontaneous
  Country: JP (occurrence: JP)
  Receive Date: 20170613
  Receipt Date: 20170711
  Transmission Date: 20171127
  Serious: Yes (Death, Other)
  Sender: FDA-Public Use
  Company Number: JP-PFIZER INC-2017057657

PATIENT
  Age: 86 Year
  Sex: Male

DRUGS (4)
  1. TRAMAL [Suspect]
     Active Substance: TRAMADOL
     Indication: CANCER PAIN
     Dosage: 25 MG, 3X/DAY
     Route: 048
     Dates: start: 20160603, end: 20160608
  2. TRAMAL [Suspect]
     Active Substance: TRAMADOL
     Dosage: 25 MG, 4X/DAY
     Route: 048
     Dates: start: 20160609
  3. LYRICA [Suspect]
     Active Substance: PREGABALIN
     Indication: NEURALGIA
     Dosage: 25 MG, 1X/DAY
     Route: 048
     Dates: start: 20160607, end: 20160814
  4. ZOLPIDEM TARTRATE 5MG PFIZER [Suspect]
     Active Substance: ZOLPIDEM TARTRATE
     Indication: INSOMNIA
     Dosage: 5 MG, 1X/DAY
     Route: 048
     Dates: end: 20160606

REACTIONS (4)
  - Disorientation [Unknown]
  - Neoplasm progression [Fatal]
  - Pneumonia aspiration [Unknown]
  - Delirium [Unknown]

NARRATIVE: CASE EVENT DATE: 20160607
